FAERS Safety Report 21842855 (Version 2)
Quarter: 2023Q1

REPORT INFORMATION
  Report Type: Report from Study
  Country: GB (occurrence: GB)
  Receive Date: 20230110
  Receipt Date: 20230120
  Transmission Date: 20230417
  Serious: Yes (Other)
  Sender: FDA-Public Use
  Company Number: GB-ROCHE-2863967

PATIENT
  Age: 57 Year
  Sex: Female
  Weight: 63.1 kg

DRUGS (39)
  1. CARBOPLATIN [Suspect]
     Active Substance: CARBOPLATIN
     Indication: Small cell lung cancer extensive stage
     Dosage: 560 MG
     Route: 065
     Dates: start: 20210517
  2. CARBOPLATIN [Suspect]
     Active Substance: CARBOPLATIN
     Dosage: 500 MG
     Route: 065
     Dates: start: 20210610
  3. ATEZOLIZUMAB [Suspect]
     Active Substance: ATEZOLIZUMAB
     Indication: Small cell lung cancer extensive stage
     Dosage: 1200 MG, EVERY 3 WEEKS (MOST RECENT DOSE: 10/JUN/2021)
     Route: 042
     Dates: start: 20210517
  4. ATEZOLIZUMAB [Suspect]
     Active Substance: ATEZOLIZUMAB
     Dosage: 1200 MG, EVERY 3 WEEKS
     Route: 041
     Dates: start: 20210610
  5. ETOPOSIDE [Suspect]
     Active Substance: ETOPOSIDE
     Indication: Small cell lung cancer extensive stage
     Dosage: 132 MG
     Route: 042
     Dates: start: 20210517
  6. ETOPOSIDE [Suspect]
     Active Substance: ETOPOSIDE
     Indication: Small cell lung cancer extensive stage
     Dosage: 500 MG
     Route: 048
     Dates: start: 20210611
  7. CHLORPHENIRAMINE [Concomitant]
     Active Substance: CHLORPHENIRAMINE
     Dosage: 10 MG
     Dates: start: 20210610, end: 20210610
  8. CHLORPHENIRAMINE [Concomitant]
     Active Substance: CHLORPHENIRAMINE
     Dosage: 10 MG
     Dates: start: 20210701, end: 20210701
  9. CHLORPHENIRAMINE [Concomitant]
     Active Substance: CHLORPHENIRAMINE
     Dosage: 10 MG
     Route: 065
     Dates: start: 20210722, end: 20210722
  10. CHLORPHENIRAMINE [Concomitant]
     Active Substance: CHLORPHENIRAMINE
     Dosage: 10 MG
     Dates: start: 20210812, end: 20210812
  11. CHLORPHENIRAMINE [Concomitant]
     Active Substance: CHLORPHENIRAMINE
     Dosage: 10 MG
     Dates: start: 20210903, end: 20210903
  12. CHLORPHENIRAMINE [Concomitant]
     Active Substance: CHLORPHENIRAMINE
     Dosage: 10 MG
     Route: 065
     Dates: start: 20210923, end: 20210923
  13. CHLORPHENIRAMINE [Concomitant]
     Active Substance: CHLORPHENIRAMINE
     Dosage: 10 MG
     Route: 065
     Dates: start: 20211014, end: 20211014
  14. CHLORPHENIRAMINE [Concomitant]
     Active Substance: CHLORPHENIRAMINE
     Dosage: 10 MG
     Route: 065
     Dates: start: 20211103, end: 20211103
  15. CHLORPHENIRAMINE [Concomitant]
     Active Substance: CHLORPHENIRAMINE
     Dosage: 10 MG
     Route: 065
     Dates: start: 20211125, end: 20211125
  16. CHLORPHENIRAMINE [Concomitant]
     Active Substance: CHLORPHENIRAMINE
     Dosage: 10 MG
     Route: 065
     Dates: start: 20211216, end: 20211216
  17. CHLORPHENIRAMINE [Concomitant]
     Active Substance: CHLORPHENIRAMINE
     Dosage: 10 MG
     Route: 065
     Dates: start: 20220107, end: 20220107
  18. CHLORPHENIRAMINE [Concomitant]
     Active Substance: CHLORPHENIRAMINE
     Dosage: 10 MG
     Route: 065
     Dates: start: 20220128, end: 20220128
  19. CHLORPHENIRAMINE [Concomitant]
     Active Substance: CHLORPHENIRAMINE
     Dosage: 10 MG
     Route: 065
     Dates: start: 20220218, end: 20220218
  20. CHLORPHENIRAMINE [Concomitant]
     Active Substance: CHLORPHENIRAMINE
     Dosage: 10 MG
     Route: 065
     Dates: start: 20220311, end: 20220311
  21. CHLORPHENIRAMINE [Concomitant]
     Active Substance: CHLORPHENIRAMINE
     Dosage: 10 MG
     Route: 065
     Dates: start: 20220401, end: 20220401
  22. CHLORPHENIRAMINE [Concomitant]
     Active Substance: CHLORPHENIRAMINE
     Dosage: 10 MG
     Route: 065
     Dates: start: 20220422, end: 20220422
  23. CHLORPHENIRAMINE [Concomitant]
     Active Substance: CHLORPHENIRAMINE
     Dosage: 10 MG
     Route: 065
     Dates: start: 20220606, end: 20220606
  24. CHLORPHENIRAMINE [Concomitant]
     Active Substance: CHLORPHENIRAMINE
     Dosage: 10 MG
     Route: 065
     Dates: start: 20220627, end: 20220627
  25. CHLORPHENIRAMINE [Concomitant]
     Active Substance: CHLORPHENIRAMINE
     Dosage: 10 MG
     Route: 065
     Dates: start: 20220720, end: 20220720
  26. CHLORPHENIRAMINE [Concomitant]
     Active Substance: CHLORPHENIRAMINE
     Dosage: 10 MG
     Route: 065
     Dates: start: 20220810, end: 20220810
  27. CHLORPHENIRAMINE [Concomitant]
     Active Substance: CHLORPHENIRAMINE
     Dosage: 10 MG
     Route: 065
     Dates: start: 20220921, end: 20220921
  28. CHLORPHENIRAMINE [Concomitant]
     Active Substance: CHLORPHENIRAMINE
     Dosage: 10 MG
     Dates: start: 20221012, end: 20221012
  29. CHLORPHENIRAMINE [Concomitant]
     Active Substance: CHLORPHENIRAMINE
     Dosage: 10 MG
     Dates: start: 20221123, end: 20221123
  30. CHLORPHENIRAMINE [Concomitant]
     Active Substance: CHLORPHENIRAMINE
     Dosage: 10 MG
     Dates: start: 20221214, end: 20221214
  31. CHLORPHENIRAMINE [Concomitant]
     Active Substance: CHLORPHENIRAMINE
     Dosage: 10 MG
     Dates: start: 20230104, end: 20230104
  32. CHLORPHENIRAMINE [Concomitant]
     Active Substance: CHLORPHENIRAMINE
     Dosage: UNK
  33. DEXAMETHASONE [Concomitant]
     Active Substance: DEXAMETHASONE
     Dosage: 8 MG (SUBSEQUENT DOSE: 10JUN2021, 01JUL2021 AND 22JUL2021)
     Route: 065
     Dates: start: 20210517, end: 20210517
  34. ONDANSETRON [Concomitant]
     Active Substance: ONDANSETRON
     Dosage: 8 MG (SUBSEQUENT DOSE: 10JUN2021, 01JUL2021 AND 22JUL2021)
     Route: 065
     Dates: start: 20210517, end: 20210517
  35. ONDANSETRON [Concomitant]
     Active Substance: ONDANSETRON
     Dosage: 8 MG
     Dates: start: 20210610, end: 20210610
  36. ACETAMINOPHEN [Concomitant]
     Active Substance: ACETAMINOPHEN
     Dosage: 1 G (SUBSEQUENT DOSE: 10JUN2021, 01JUL2021 AND 22JUL2021)
     Route: 065
     Dates: start: 20210517, end: 20210517
  37. ACETAMINOPHEN [Concomitant]
     Active Substance: ACETAMINOPHEN
     Dosage: 1000 MG
     Route: 065
     Dates: start: 20220107, end: 20220107
  38. ACETAMINOPHEN [Concomitant]
     Active Substance: ACETAMINOPHEN
     Dosage: 1000 MG
     Route: 065
     Dates: start: 20220422, end: 20220422
  39. ALBUTEROL [Concomitant]
     Active Substance: ALBUTEROL
     Route: 065

REACTIONS (5)
  - Neutropenia [Recovered/Resolved]
  - Pruritus [Not Recovered/Not Resolved]
  - Alopecia [Not Recovered/Not Resolved]
  - Fatigue [Recovered/Resolved]
  - Vomiting [Recovered/Resolved]

NARRATIVE: CASE EVENT DATE: 20210601
